FAERS Safety Report 17451142 (Version 4)
Quarter: 2020Q1

REPORT INFORMATION
  Report Type: Spontaneous
  Country: JP (occurrence: JP)
  Receive Date: 20200224
  Receipt Date: 20200320
  Transmission Date: 20200409
  Serious: Yes (Hospitalization)
  Sender: FDA-Public Use
  Company Number: JP-ROCHE-2551885

PATIENT
  Sex: Male
  Weight: .78 kg

DRUGS (5)
  1. PREDONINE [Concomitant]
     Active Substance: PREDNISOLONE
     Route: 064
  2. THYRADIN [Concomitant]
     Active Substance: LEVOTHYROXINE
     Route: 064
  3. ACTEMRA [Suspect]
     Active Substance: TOCILIZUMAB
     Indication: STILL^S DISEASE
     Dosage: DOSAGE IS UNCERTAIN.
     Route: 064
     Dates: start: 20190311, end: 20190325
  4. PREDONINE [Concomitant]
     Active Substance: PREDNISOLONE
     Route: 064
     Dates: start: 20190304
  5. PREDONINE [Concomitant]
     Active Substance: PREDNISOLONE
     Route: 064

REACTIONS (2)
  - Foetal exposure during pregnancy [Unknown]
  - Low birth weight baby [Unknown]
